FAERS Safety Report 15919047 (Version 1)
Quarter: 2019Q1

REPORT INFORMATION
  Report Type: Spontaneous
  Country: ES (occurrence: ES)
  Receive Date: 20190205
  Receipt Date: 20190205
  Transmission Date: 20190417
  Serious: Yes (Death)
  Sender: FDA-Public Use
  Company Number: ES-MYLANLABS-2019M1008859

PATIENT
  Age: 31 Year
  Sex: Female

DRUGS (3)
  1. FLUCONAZOLE. [Suspect]
     Active Substance: FLUCONAZOLE
     Indication: BLASTOMYCOSIS
     Dosage: 400 MG, UNK
  2. AMPHOTERICIN B. [Suspect]
     Active Substance: AMPHOTERICIN B
     Indication: BLASTOMYCOSIS
     Dosage: 1.3 MILLIGRAM/KILOGRAM
  3. 5-FLUOROCYTOSINE [Suspect]
     Active Substance: FLUCYTOSINE
     Indication: BLASTOMYCOSIS
     Dosage: 3 MILLIGRAM/KILOGRAM

REACTIONS (1)
  - Drug ineffective [Fatal]
